FAERS Safety Report 25451156 (Version 1)
Quarter: 2025Q2

REPORT INFORMATION
  Report Type: Spontaneous
  Country: DE (occurrence: DE)
  Receive Date: 20250618
  Receipt Date: 20250618
  Transmission Date: 20250716
  Serious: Yes (Other)
  Sender: BOEHRINGER INGELHEIM
  Company Number: DE-Komodo Health-a23aa000008INZRAA4

PATIENT
  Age: 65 Year
  Sex: Female

DRUGS (3)
  1. OFEV [Suspect]
     Active Substance: NINTEDANIB
     Indication: Pulmonary fibrosis
     Dosage: MORNING AND IN THE EVENING
     Dates: start: 20250221
  2. OFEV [Suspect]
     Active Substance: NINTEDANIB
     Dosage: MORNING AND IN THE EVENING
     Dates: end: 20250611
  3. RANOLAZINE [Concomitant]
     Active Substance: RANOLAZINE
     Indication: Product used for unknown indication

REACTIONS (7)
  - Circulatory collapse [Recovered/Resolved]
  - Circulatory collapse [Recovered/Resolved]
  - Cold sweat [Recovered/Resolved]
  - Cold sweat [Recovered/Resolved]
  - Diarrhoea [Recovered/Resolved]
  - Dehydration [Recovered/Resolved]
  - Weight decreased [Recovered/Resolved]

NARRATIVE: CASE EVENT DATE: 20250421
